FAERS Safety Report 7804928-1 (Version None)
Quarter: 2011Q4

REPORT INFORMATION
  Report Type: 
  Country: None (occurrence: None)
  Receive Date: 20111010
  Receipt Date: 20111004
  Transmission Date: 20120403
  Serious: Yes (Hospitalization)
  Sender: FDA-Public Use
  Company Number: FR-B.I. PHARMACEUTICALS,INC./RIDGEFIELD-2011-FF-00928FF

PATIENT
  Age: 73 Year
  Sex: Male

DRUGS (2)
  1. BRONCHODUAL [Suspect]
     Indication: CHRONIC OBSTRUCTIVE PULMONARY DISEASE
     Dosage: 100/40MCG
     Route: 055
     Dates: start: 20110705
  2. SPIRIVA [Suspect]
     Indication: CHRONIC OBSTRUCTIVE PULMONARY DISEASE
     Dosage: 5 MCG
     Route: 055
     Dates: start: 20110509, end: 20110705

REACTIONS (3)
  - URTICARIA [None]
  - URINARY RETENTION [None]
  - PROSTATIC ADENOMA [None]
